FAERS Safety Report 5653446-8 (Version None)
Quarter: 2008Q1

REPORT INFORMATION
  Report Type: 
  Country: None (occurrence: None)
  Receive Date: 20080306
  Receipt Date: 20080225
  Transmission Date: 20080703
  Serious: Yes (Hospitalization)
  Sender: FDA-Public Use
  Company Number: B0510805A

PATIENT
  Age: 51 Year
  Sex: Male

DRUGS (4)
  1. FORTUM [Suspect]
     Indication: UROSEPSIS
     Route: 042
     Dates: start: 20071023, end: 20071028
  2. AUGMENTIN '125' [Suspect]
     Indication: UROSEPSIS
     Route: 048
     Dates: start: 20071012, end: 20071018
  3. EFFEXOR [Concomitant]
     Indication: DRUG USE FOR UNKNOWN INDICATION
     Route: 065
  4. NOZINAN [Concomitant]
     Indication: DRUG USE FOR UNKNOWN INDICATION
     Route: 048

REACTIONS (3)
  - CHOLESTASIS [None]
  - EFFUSION [None]
  - HEPATIC ENZYME INCREASED [None]
